FAERS Safety Report 8014664-7 (Version None)
Quarter: 2011Q4

REPORT INFORMATION
  Report Type: 
  Country: None (occurrence: None)
  Receive Date: 20111229
  Receipt Date: 20111229
  Transmission Date: 20120403
  Serious: Yes (Hospitalization)
  Sender: FDA-Public Use
  Company Number: DE-ABBOTT-10P-062-0672136-00

PATIENT
  Weight: 73.2 kg

DRUGS (1)
  1. HUMIRA [Suspect]
     Indication: RHEUMATOID ARTHRITIS
     Route: 058
     Dates: start: 20100212, end: 20110901

REACTIONS (15)
  - PAIN IN EXTREMITY [None]
  - MUSCLE SPASMS [None]
  - ARTHRITIS [None]
  - KYPHOSIS [None]
  - SPONDYLITIS [None]
  - BORRELIA INFECTION [None]
  - GENERAL PHYSICAL HEALTH DETERIORATION [None]
  - HELICOBACTER INFECTION [None]
  - MOBILITY DECREASED [None]
  - CHLAMYDIAL INFECTION [None]
  - LYME DISEASE [None]
  - ARTHRALGIA [None]
  - COUGH [None]
  - ARTHROPATHY [None]
  - SENSATION OF PRESSURE [None]
